FAERS Safety Report 21397548 (Version 1)
Quarter: 2022Q3

REPORT INFORMATION
  Report Type: Report from Study
  Country: CN (occurrence: CN)
  Receive Date: 20220930
  Receipt Date: 20220930
  Transmission Date: 20221027
  Serious: Yes (Other)
  Sender: FDA-Public Use
  Company Number: CN-PFIZER INC-PV202200070391

PATIENT
  Sex: Female

DRUGS (2)
  1. CARBOPROST TROMETHAMINE [Suspect]
     Active Substance: CARBOPROST TROMETHAMINE
     Indication: Placenta praevia
     Dosage: 250 UG
     Route: 015
  2. OXYTOCIN [Concomitant]
     Active Substance: OXYTOCIN

REACTIONS (1)
  - Venous thrombosis limb [Unknown]
